FAERS Safety Report 8090727-5 (Version None)
Quarter: 2012Q1

REPORT INFORMATION
  Report Type: 
  Country: None (occurrence: None)
  Receive Date: 20120130
  Receipt Date: 20120116
  Transmission Date: 20120608
  Serious: Yes (Hospitalization)
  Sender: FDA-Public Use
  Company Number: DE-TEVA-318809GER

PATIENT
  Sex: Female
  Weight: 76 kg

DRUGS (11)
  1. CARBOPLATIN [Suspect]
     Indication: BREAST CANCER
     Route: 042
     Dates: start: 20110914, end: 20111207
  2. PACLITAXEL [Suspect]
     Indication: BREAST CANCER
     Route: 042
     Dates: start: 20110914, end: 20111207
  3. PACLITAXEL [Suspect]
     Route: 042
     Dates: start: 20111207
  4. AVASTIN [Suspect]
     Indication: BREAST CANCER
     Route: 042
     Dates: start: 20110914, end: 20111207
  5. DIPYRONE TAB [Concomitant]
     Dosage: 500 MILLIGRAM;
     Dates: start: 20111207, end: 20120105
  6. TILIDIN [Concomitant]
     Dosage: 50 MG TILIDINE AND 4 MG NALOXONE PER DAY
     Dates: start: 20120105
  7. DOXORUBICIN HYDROCHLORIDE [Suspect]
     Indication: BREAST CANCER
     Route: 042
     Dates: start: 20110914, end: 20111207
  8. CARBOPLATIN [Suspect]
     Route: 042
     Dates: start: 20111207
  9. ZOLPIDEM [Concomitant]
     Dosage: 20 MILLIGRAM;
     Dates: start: 20111214
  10. DOXORUBICIN HYDROCHLORIDE [Suspect]
     Route: 042
     Dates: start: 20111207
  11. AVASTIN [Suspect]
     Route: 042
     Dates: start: 20111207

REACTIONS (1)
  - ANAL FISSURE [None]
